FAERS Safety Report 4780849-6 (Version None)
Quarter: 2005Q3

REPORT INFORMATION
  Report Type: 
  Country: None (occurrence: None)
  Receive Date: 20050914
  Receipt Date: 20040802
  Transmission Date: 20060218
  Serious: Yes (Death)
  Sender: FDA-Public Use
  Company Number: 163-20785-04080097

PATIENT
  Age: 61 Year
  Sex: Male

DRUGS (2)
  1. THALOMID [Suspect]
     Indication: BRONCHIAL CARCINOMA
     Dosage: 150 MG, DAILY, ORAL
     Route: 048
     Dates: start: 20040714, end: 20040701
  2. THALOMID [Suspect]
     Indication: LUNG NEOPLASM MALIGNANT
     Dosage: 150 MG, DAILY, ORAL
     Route: 048
     Dates: start: 20040714, end: 20040701

REACTIONS (11)
  - CORONARY ARTERY THROMBOSIS [None]
  - DEATH [None]
  - DISEASE PROGRESSION [None]
  - HAEMORRHAGE CORONARY ARTERY [None]
  - HYPERHIDROSIS [None]
  - METASTASES TO HEART [None]
  - METASTASES TO LUNG [None]
  - METASTASES TO LYMPH NODES [None]
  - METASTATIC RENAL CELL CARCINOMA [None]
  - PAIN [None]
  - RESPIRATORY FAILURE [None]
